FAERS Safety Report 18505478 (Version 1)
Quarter: 2020Q4

REPORT INFORMATION
  Report Type: Spontaneous
  Country: DE (occurrence: DE)
  Receive Date: 20201116
  Receipt Date: 20201116
  Transmission Date: 20210114
  Serious: Yes (Hospitalization)
  Sender: FDA-Public Use
  Company Number: DE-TEVA-2020-DE-1848032

PATIENT
  Age: 37 Year
  Sex: Female

DRUGS (2)
  1. CITALOPRAM [Concomitant]
     Active Substance: CITALOPRAM HYDROBROMIDE
     Dosage: 30 MILLIGRAM DAILY;  1-0-0-0
     Route: 048
  2. COTRIM-CT 800MG/160MG [Suspect]
     Active Substance: SULFAMETHOXAZOLE\TRIMETHOPRIM
     Dosage: 800 | 160 MG, ONCE ON 26082020
     Route: 048

REACTIONS (5)
  - Nausea [Unknown]
  - Vomiting [Unknown]
  - Abdominal pain upper [Unknown]
  - General physical health deterioration [Unknown]
  - Diarrhoea [Unknown]
